FAERS Safety Report 16584608 (Version 1)
Quarter: 2019Q3

REPORT INFORMATION
  Report Type: Spontaneous
  Country: DE (occurrence: DE)
  Receive Date: 20190717
  Receipt Date: 20190717
  Transmission Date: 20191004
  Serious: Yes (Hospitalization)
  Sender: FDA-Public Use
  Company Number: DE-TEVA-2019-DE-1077147

PATIENT
  Age: 62 Year
  Sex: Female
  Weight: 61 kg

DRUGS (8)
  1. LYRICA 200MG [Concomitant]
     Dosage: 200 MG, 1-0-1-0, TABLET
     Route: 048
  2. FLUOROURACIL. [Suspect]
     Active Substance: FLUOROURACIL
     Dosage: NK MG / M2, ACCORDING TO SCHEME, MOST RECENTLY ON 18.01.2018, SOLUTION FOR INJECTION / INFUSION
     Route: 042
  3. CALCIUM LEVOFOLINAT [Suspect]
     Active Substance: LEVOLEUCOVORIN CALCIUM
     Dosage: NK MG / M2, ACCORDING TO SCHEME, MOST RECENTLY ON 18.01.2018, SOLUTION FOR INJECTION / INFUSION
     Route: 042
  4. SPIRONOLACTONE. [Concomitant]
     Active Substance: SPIRONOLACTONE
     Dosage: 100 MG, 1-0-0-0, TABLET
     Route: 048
  5. CELECOXIB. [Concomitant]
     Active Substance: CELECOXIB
     Dosage: 100 MG, 1-0-1-0, TABLET
     Route: 048
  6. TAPENTADOL [Concomitant]
     Active Substance: TAPENTADOL
     Dosage: 50 MG, 1-0-1-0, TABLETTEN
     Route: 048
  7. LEVOTHYROXIN-NATRIUM [Concomitant]
     Active Substance: LEVOTHYROXINE SODIUM
     Dosage: 75 MICROGRAM, 1-0-0-0, TABLET
     Route: 048
  8. METAMIZOL [Concomitant]
     Active Substance: METAMIZOLE SODIUM
     Dosage: 1 G, 0-0-1-1, TABLET
     Route: 048

REACTIONS (2)
  - General physical health deterioration [Unknown]
  - Depressed level of consciousness [Unknown]
